FAERS Safety Report 19621468 (Version 1)
Quarter: 2021Q3

REPORT INFORMATION
  Report Type: Spontaneous
  Country: US (occurrence: US)
  Receive Date: 20210728
  Receipt Date: 20210728
  Transmission Date: 20211014
  Serious: Yes (Death)
  Sender: FDA-Public Use
  Company Number: None

PATIENT
  Sex: Male
  Weight: 63 kg

DRUGS (14)
  1. CLINDAMYCIN. [Concomitant]
     Active Substance: CLINDAMYCIN
  2. AMOXICILLIN?POT CLAVULANATE [Concomitant]
     Active Substance: AMOXICILLIN\CLAVULANATE POTASSIUM
  3. REBLOZYL [Suspect]
     Active Substance: LUSPATERCEPT-AAMT
     Indication: MYELODYSPLASTIC SYNDROME
     Dosage: ?          OTHER FREQUENCY:ONCE EVERY 3 WEEKS;?
     Route: 058
  4. LEVAQUIN [Concomitant]
     Active Substance: LEVOFLOXACIN
  5. AZACITIDINE. [Concomitant]
     Active Substance: AZACITIDINE
  6. ZARXIO [Concomitant]
     Active Substance: FILGRASTIM-SNDZ
  7. EXJADE [Concomitant]
     Active Substance: DEFERASIROX
  8. AMOXICILLIN. [Concomitant]
     Active Substance: AMOXICILLIN
  9. CIPROFLOXACIN. [Concomitant]
     Active Substance: CIPROFLOXACIN
  10. NEULASTA [Concomitant]
     Active Substance: PEGFILGRASTIM
  11. ONDANSETRON [Concomitant]
     Active Substance: ONDANSETRON
  12. FILGRASTIM [Concomitant]
     Active Substance: FILGRASTIM
  13. ARANESP [Concomitant]
     Active Substance: DARBEPOETIN ALFA
  14. FUROSEMIDE. [Concomitant]
     Active Substance: FUROSEMIDE

REACTIONS (1)
  - Death [None]
